FAERS Safety Report 8965305 (Version 1)
Quarter: 2012Q4

REPORT INFORMATION
  Report Type: 
  Country: CN (occurrence: CN)
  Receive Date: 20121213
  Receipt Date: 20121213
  Transmission Date: 20130627
  Serious: Yes (Hospitalization)
  Sender: FDA-Public Use
  Company Number: CN-BAYER-2012-128877

PATIENT
  Age: 60 Year
  Sex: Female

DRUGS (1)
  1. BAYASPIRIN [Suspect]
     Indication: PROPHYLAXIS
     Dosage: 0.1 g, QD
     Dates: start: 20100814, end: 20100902

REACTIONS (1)
  - Hyponatraemia [Recovering/Resolving]
